FAERS Safety Report 8621963-4 (Version None)
Quarter: 2012Q3

REPORT INFORMATION
  Report Type: 
  Country: None (occurrence: None)
  Receive Date: 20120823
  Receipt Date: 20120823
  Transmission Date: 20120928
  Serious: Yes (Other)
  Sender: FDA-Public Use
  Company Number: None

PATIENT
  Sex: Female

DRUGS (1)
  1. HUMIRA [Suspect]
     Indication: CROHN'S DISEASE
     Dosage: 40 MG EVERY OTHER WEEK SUB-Q
     Route: 058
     Dates: start: 20110728, end: 20110820

REACTIONS (3)
  - CROHN'S DISEASE [None]
  - INJECTION SITE SWELLING [None]
  - HYPERSENSITIVITY [None]
